FAERS Safety Report 25537136 (Version 1)
Quarter: 2025Q3

REPORT INFORMATION
  Report Type: Spontaneous
  Country: US (occurrence: US)
  Receive Date: 20250710
  Receipt Date: 20250710
  Transmission Date: 20251021
  Serious: No
  Sender: ELI LILLY AND COMPANY
  Company Number: US-ELI_LILLY_AND_COMPANY-US202507006217

PATIENT
  Sex: Female

DRUGS (1)
  1. TALTZ [Suspect]
     Active Substance: IXEKIZUMAB
     Indication: Psoriasis
     Route: 065

REACTIONS (7)
  - Blood urine present [Unknown]
  - Ear swelling [Not Recovered/Not Resolved]
  - Lymphadenopathy [Unknown]
  - Rash [Unknown]
  - Drug hypersensitivity [Unknown]
  - Injection site reaction [Unknown]
  - Influenza like illness [Unknown]

NARRATIVE: CASE EVENT DATE: 20250707
